FAERS Safety Report 21652120 (Version 1)
Quarter: 2022Q4

REPORT INFORMATION
  Report Type: Spontaneous
  Country: CN (occurrence: CN)
  Receive Date: 20221128
  Receipt Date: 20221128
  Transmission Date: 20230113
  Serious: Yes (Other)
  Sender: FDA-Public Use
  Company Number: CN-PFIZER INC-PV202200111922

PATIENT
  Age: 50 Year
  Sex: Female
  Weight: 70 kg

DRUGS (2)
  1. EPIRUBICIN HYDROCHLORIDE [Suspect]
     Active Substance: EPIRUBICIN HYDROCHLORIDE
     Indication: Breast cancer
     Dosage: 168 MG, 1X/DAY Q3W
     Route: 041
     Dates: start: 20221108, end: 20221108
  2. CYCLOPHOSPHAMIDE [Suspect]
     Active Substance: CYCLOPHOSPHAMIDE
     Indication: Breast cancer
     Dosage: 1 G, 1X/DAY Q3W
     Route: 041
     Dates: start: 20221108, end: 20221108

REACTIONS (3)
  - Nausea [Recovering/Resolving]
  - Constipation [Recovering/Resolving]
  - Discomfort [Recovering/Resolving]

NARRATIVE: CASE EVENT DATE: 20221109
